FAERS Safety Report 25873692 (Version 1)
Quarter: 2025Q4

REPORT INFORMATION
  Report Type: Spontaneous
  Country: US (occurrence: US)
  Receive Date: 20251002
  Receipt Date: 20251002
  Transmission Date: 20260118
  Serious: Yes (Other)
  Sender: INTRA-CELLULAR THERAPIES
  Company Number: US-INTRA-CELLULAR THERAPIES, INC.-2025ICT01423

PATIENT
  Age: 21 Year
  Sex: Male

DRUGS (2)
  1. CAPLYTA [Suspect]
     Active Substance: LUMATEPERONE
     Indication: Affective disorder
     Dosage: UNK
  2. DOXYCYCLINE [Concomitant]
     Active Substance: DOXYCYCLINE

REACTIONS (2)
  - Tardive dyskinesia [Unknown]
  - Off label use [Recovered/Resolved]
